FAERS Safety Report 15015558 (Version 1)
Quarter: 2018Q2

REPORT INFORMATION
  Report Type: Spontaneous
  Country: RO (occurrence: RO)
  Receive Date: 20180615
  Receipt Date: 20180615
  Transmission Date: 20180711
  Serious: Yes (Life-Threatening)
  Sender: FDA-Public Use
  Company Number: RO-CELLTRION INC.-2018RO020510

PATIENT

DRUGS (7)
  1. REMSIMA [Suspect]
     Active Substance: INFLIXIMAB
     Dosage: 200 MG (2 BOTTLE)
     Route: 042
     Dates: start: 20180507, end: 20180507
  2. REMSIMA [Suspect]
     Active Substance: INFLIXIMAB
     Indication: PSORIATIC ARTHROPATHY
     Dosage: 200 MG (2 BOTTLE)
     Route: 042
  3. DICLOFENAC [Concomitant]
     Active Substance: DICLOFENAC
     Indication: PSORIATIC ARTHROPATHY
     Dosage: 50 MG
     Route: 048
  4. OMEPRAZOLE. [Concomitant]
     Active Substance: OMEPRAZOLE
     Indication: PROPHYLAXIS
     Dosage: 20 MG
     Route: 048
  5. CALCIUM [Concomitant]
     Active Substance: CALCIUM
  6. CYCLOSPORINE. [Concomitant]
     Active Substance: CYCLOSPORINE
     Indication: PSORIATIC ARTHROPATHY
     Dosage: 200 MG
     Route: 048
     Dates: start: 2010
  7. MEDROL [Concomitant]
     Active Substance: METHYLPREDNISOLONE
     Indication: PSORIATIC ARTHROPATHY
     Dosage: 12 MG
     Route: 048
     Dates: start: 201805

REACTIONS (5)
  - Erythema [Recovered/Resolved]
  - Dyspnoea [Recovered/Resolved]
  - Anxiety [Recovered/Resolved]
  - Rash macular [Recovered/Resolved]
  - Urticaria [Recovered/Resolved]

NARRATIVE: CASE EVENT DATE: 20180507
